FAERS Safety Report 4999527-3 (Version None)
Quarter: 2006Q2

REPORT INFORMATION
  Report Type: 
  Country: None (occurrence: None)
  Receive Date: 20060511
  Receipt Date: 20050412
  Transmission Date: 20061013
  Serious: Yes (Hospitalization, Disabling)
  Sender: FDA-Public Use
  Company Number: US-MERCK-0504USA02216

PATIENT
  Age: 62 Year
  Sex: Female
  Weight: 91 kg

DRUGS (4)
  1. VIOXX [Suspect]
     Indication: PAIN MANAGEMENT
     Route: 048
     Dates: start: 20001004, end: 20020320
  2. VIOXX [Suspect]
     Route: 048
     Dates: start: 20001004, end: 20020320
  3. VIOXX [Suspect]
     Indication: ARTHRITIS
     Route: 048
     Dates: start: 20001004, end: 20020320
  4. VIOXX [Suspect]
     Route: 048
     Dates: start: 20001004, end: 20020320

REACTIONS (19)
  - ANXIETY [None]
  - ARTERIOSPASM CORONARY [None]
  - ARTHRALGIA [None]
  - ARTHROPATHY [None]
  - BLOOD PRESSURE INADEQUATELY CONTROLLED [None]
  - CONDITION AGGRAVATED [None]
  - CORONARY ARTERY DISEASE [None]
  - DEPRESSION [None]
  - GASTROOESOPHAGEAL REFLUX DISEASE [None]
  - HYPERLIPIDAEMIA [None]
  - HYPERTENSION [None]
  - HYPOTHYROIDISM [None]
  - INTERVERTEBRAL DISC DISORDER [None]
  - MITRAL VALVE INCOMPETENCE [None]
  - MYOCARDIAL INFARCTION [None]
  - PAIN [None]
  - PEPTIC ULCER [None]
  - PULMONARY HYPERTENSION [None]
  - TRICUSPID VALVE INCOMPETENCE [None]
